FAERS Safety Report 5905680-7 (Version None)
Quarter: 2008Q4

REPORT INFORMATION
  Report Type: 
  Country: None (occurrence: None)
  Receive Date: 20081002
  Receipt Date: 20081001
  Transmission Date: 20090506
  Serious: Yes (Hospitalization)
  Sender: FDA-Public Use
  Company Number: US-ABBOTT-08P-163-0477455-00

PATIENT
  Age: 54 Year
  Sex: Female

DRUGS (8)
  1. DEPAKOTE [Suspect]
     Indication: BIPOLAR DISORDER
     Route: 048
  2. LEVOTHYROXINE SODIUM [Concomitant]
     Indication: HYPOTHYROIDISM
     Route: 048
  3. OXYBUTYNIN CHLORIDE [Concomitant]
     Indication: BLADDER DISORDER
     Route: 048
  4. PROTONICS [Concomitant]
     Indication: GASTROOESOPHAGEAL REFLUX DISEASE
     Route: 048
  5. VERAPAMIL [Concomitant]
     Indication: HYPERTENSION
     Route: 048
  6. POTASSIUM CHLORIDE [Concomitant]
     Indication: SUPPLEMENTATION THERAPY
     Route: 048
  7. HALOPERIDOL [Concomitant]
     Indication: BIPOLAR DISORDER
     Route: 048
  8. XOPENEX NEBULIZATION [Concomitant]
     Indication: DRUG USE FOR UNKNOWN INDICATION
     Route: 055

REACTIONS (2)
  - BIPOLAR DISORDER [None]
  - DRUG LEVEL BELOW THERAPEUTIC [None]
